FAERS Safety Report 11068280 (Version 1)
Quarter: 2015Q2

REPORT INFORMATION
  Report Type: Spontaneous
  Country: US (occurrence: None)
  Receive Date: 20150424
  Receipt Date: 20150424
  Transmission Date: 20150821
  Serious: Yes (Disabling)
  Sender: FDA-Public Use
  Company Number: None

PATIENT
  Age: 45 Year
  Sex: Female
  Weight: 89.81 kg

DRUGS (11)
  1. LASIX [Concomitant]
     Active Substance: FUROSEMIDE
  2. FLEXERIL [Concomitant]
     Active Substance: CYCLOBENZAPRINE HYDROCHLORIDE
  3. TOPIRAMATE. [Suspect]
     Active Substance: TOPIRAMATE
     Indication: PAIN IN EXTREMITY
     Dosage: HALF A PILL THEN 1
     Route: 048
     Dates: start: 20150324, end: 20150406
  4. WELLBUTRIN [Concomitant]
     Active Substance: BUPROPION HYDROCHLORIDE
  5. CALCIUM [Concomitant]
     Active Substance: CALCIUM
  6. LATUDA [Suspect]
     Active Substance: LURASIDONE HYDROCHLORIDE
     Indication: BIPOLAR DISORDER
     Dosage: 1 PILL
     Route: 048
     Dates: start: 20150304, end: 20150318
  7. AMBIEN [Concomitant]
     Active Substance: ZOLPIDEM TARTRATE
  8. TOPIRAMATE. [Suspect]
     Active Substance: TOPIRAMATE
     Indication: MYALGIA
     Dosage: HALF A PILL THEN 1
     Route: 048
     Dates: start: 20150324, end: 20150406
  9. VESTERIL [Concomitant]
  10. TOPIRAMATE. [Suspect]
     Active Substance: TOPIRAMATE
     Indication: HYPOAESTHESIA
     Dosage: HALF A PILL THEN 1
     Route: 048
     Dates: start: 20150324, end: 20150406
  11. A-Z VITAMIN FOR WOMEN OVER 40 [Concomitant]

REACTIONS (7)
  - Pain in extremity [None]
  - Myalgia [None]
  - Dysstasia [None]
  - Musculoskeletal stiffness [None]
  - Hypoaesthesia [None]
  - Muscle contractions involuntary [None]
  - Pain [None]

NARRATIVE: CASE EVENT DATE: 20150401
